FAERS Safety Report 16045086 (Version 2)
Quarter: 2019Q2

REPORT INFORMATION
  Report Type: Report from Study
  Country: US (occurrence: US)
  Receive Date: 20190307
  Receipt Date: 20190611
  Transmission Date: 20190711
  Serious: Yes (Other)
  Sender: FDA-Public Use
  Company Number: PHEH2019US008929

PATIENT
  Sex: Male

DRUGS (1)
  1. ENTRESTO [Suspect]
     Active Substance: SACUBITRIL\VALSARTAN
     Indication: PRODUCT USED FOR UNKNOWN INDICATION
     Dosage: UNK
     Route: 048

REACTIONS (7)
  - Blood pressure fluctuation [Unknown]
  - Dizziness [Unknown]
  - Feeling abnormal [Unknown]
  - Coronary artery occlusion [Unknown]
  - Peripheral swelling [Unknown]
  - Dyspnoea [Unknown]
  - Fall [Unknown]
